FAERS Safety Report 4984145-3 (Version None)
Quarter: 2006Q2

REPORT INFORMATION
  Report Type: 
  Country: None (occurrence: None)
  Receive Date: 20060425
  Receipt Date: 20060425
  Transmission Date: 20061013
  Serious: Yes (Hospitalization)
  Sender: FDA-Public Use
  Company Number: None

PATIENT
  Age: 59 Year
  Sex: Male

DRUGS (1)
  1. FUROSEMIDE [Suspect]
     Dosage: 120 MG PO BID
     Route: 048
     Dates: start: 20060119, end: 20060307

REACTIONS (4)
  - BLOOD POTASSIUM INCREASED [None]
  - LABORATORY TEST ABNORMAL [None]
  - POLYURIA [None]
  - RENAL FAILURE [None]
